FAERS Safety Report 8592930-4 (Version None)
Quarter: 2012Q3

REPORT INFORMATION
  Report Type: 
  Country: None (occurrence: None)
  Receive Date: 20120814
  Receipt Date: 20120812
  Transmission Date: 20120928
  Serious: Yes (Other)
  Sender: FDA-Public Use
  Company Number: US-VERTEX PHARMACEUTICALS INC.-AE-2012-012006

PATIENT
  Sex: Female
  Weight: 65.83 kg

DRUGS (4)
  1. PEGASYS [Concomitant]
     Indication: HEPATITIS C
     Route: 058
     Dates: start: 20120608
  2. RIBAVIRIN [Concomitant]
     Indication: HEPATITIS C
     Route: 048
     Dates: start: 20120608
  3. RIBAVIRIN [Concomitant]
     Route: 048
     Dates: start: 20120729
  4. INCIVEK [Suspect]
     Indication: HEPATITIS C
     Route: 048
     Dates: start: 20120608

REACTIONS (8)
  - GASTRITIS [None]
  - BLISTER [None]
  - RED BLOOD CELL COUNT DECREASED [None]
  - PRURITUS [None]
  - RASH GENERALISED [None]
  - DYSPNOEA [None]
  - VOMITING [None]
  - NAUSEA [None]
